FAERS Safety Report 7610534-4 (Version None)
Quarter: 2011Q3

REPORT INFORMATION
  Report Type: 
  Country: None (occurrence: None)
  Receive Date: 20110715
  Receipt Date: 20110706
  Transmission Date: 20111222
  Serious: Yes (Other)
  Sender: FDA-Public Use
  Company Number: US-CEPHALON-2011003620

PATIENT
  Sex: Female
  Weight: 61 kg

DRUGS (12)
  1. LORTAB [Concomitant]
  2. DEPO-ESTRADIOL [Concomitant]
     Dates: start: 20100101
  3. NEURONTIN [Concomitant]
     Dates: start: 20110101
  4. LOVASTATIN [Concomitant]
     Dates: start: 20100101
  5. KLONOPIN [Concomitant]
  6. FLEXERIL [Concomitant]
  7. NUVIGIL [Suspect]
     Route: 048
     Dates: start: 20110501, end: 20110706
  8. COMBIVENT [Concomitant]
  9. LIDODERM [Concomitant]
  10. NUVIGIL [Suspect]
     Indication: NARCOLEPSY
     Route: 048
     Dates: start: 20110501, end: 20110706
  11. ATENOLOL [Concomitant]
     Dates: start: 20030101
  12. NEXIUM [Concomitant]

REACTIONS (2)
  - RASH PAPULAR [None]
  - RASH PRURITIC [None]
